FAERS Safety Report 8329181-4 (Version None)
Quarter: 2012Q2

REPORT INFORMATION
  Report Type: 
  Country: None (occurrence: None)
  Receive Date: 20120502
  Receipt Date: 20120427
  Transmission Date: 20120825
  Serious: Yes (Other)
  Sender: FDA-Public Use
  Company Number: US-PFIZER INC-2012105311

PATIENT
  Sex: Female
  Weight: 46.7 kg

DRUGS (6)
  1. PROZAC [Suspect]
     Indication: DEPRESSION
     Dosage: UNK
  2. VALIUM [Suspect]
     Indication: DEPRESSION
     Dosage: UNK
  3. VISTARIL [Suspect]
     Indication: PANIC ATTACK
     Dosage: UNK
  4. XANAX [Suspect]
     Indication: ANXIETY
     Dosage: 2 MG, 3X/DAY
  5. SOMA [Concomitant]
     Indication: BACK DISORDER
     Dosage: 350 MG, 3X/DAY
  6. XANAX [Suspect]
     Indication: PANIC ATTACK
     Dosage: UNK
     Route: 048
     Dates: start: 20050101

REACTIONS (9)
  - NERVOUSNESS [None]
  - ANXIETY [None]
  - PANIC ATTACK [None]
  - DRUG INEFFECTIVE [None]
  - ROAD TRAFFIC ACCIDENT [None]
  - EMOTIONAL DISORDER [None]
  - SUICIDAL IDEATION [None]
  - INSOMNIA [None]
  - FEAR [None]
